FAERS Safety Report 16386524 (Version 1)
Quarter: 2019Q2

REPORT INFORMATION
  Report Type: Spontaneous
  Country: DE (occurrence: DE)
  Receive Date: 20190604
  Receipt Date: 20190604
  Transmission Date: 20190711
  Serious: Yes (Hospitalization, Other)
  Sender: FDA-Public Use
  Company Number: DE-BAXTER-2019BAX010766

PATIENT
  Age: 60 Year
  Sex: Male

DRUGS (3)
  1. TISSEEL VH S/D [Suspect]
     Active Substance: APROTININ\CALCIUM CHLORIDE\FIBRINOGEN HUMAN\FACTOR XIII CONCENTRATE (HUMAN)\THROMBIN
     Dosage: DOSE REINTRODUCED
     Route: 065
  2. TACHOSIL [Suspect]
     Active Substance: FIBRINOGEN HUMAN\THROMBIN HUMAN
     Indication: TISSUE SEALING
     Route: 065
  3. TISSEEL VH S/D [Suspect]
     Active Substance: APROTININ\CALCIUM CHLORIDE\FIBRINOGEN HUMAN\FACTOR XIII CONCENTRATE (HUMAN)\THROMBIN
     Indication: TISSUE SEALING
     Route: 065

REACTIONS (4)
  - Muscular weakness [Unknown]
  - Drug ineffective [Unknown]
  - Monoparesis [Unknown]
  - Scan with contrast abnormal [Not Recovered/Not Resolved]
